FAERS Safety Report 26209148 (Version 1)
Quarter: 2025Q4

REPORT INFORMATION
  Report Type: Spontaneous
  Country: CN (occurrence: CN)
  Receive Date: 20251229
  Receipt Date: 20251229
  Transmission Date: 20260117
  Serious: Yes (Other)
  Sender: NOVARTIS
  Company Number: CN-002147023-NVSC2025CN197231

PATIENT
  Sex: Female

DRUGS (1)
  1. ENTRESTO [Suspect]
     Active Substance: SACUBITRIL\VALSARTAN
     Indication: Product used for unknown indication
     Dosage: 1 DOSAGE FORM, BID (ONE TABLET IN THE MORNING AND ONE TABLET IN THE EVENING)
     Route: 065

REACTIONS (3)
  - Arrhythmia [Unknown]
  - Palpitations [Unknown]
  - Blood pressure fluctuation [Unknown]
